FAERS Safety Report 25151307 (Version 1)
Quarter: 2025Q2

REPORT INFORMATION
  Report Type: Spontaneous
  Country: DE (occurrence: DE)
  Receive Date: 20250402
  Receipt Date: 20250402
  Transmission Date: 20250717
  Serious: Yes (Other)
  Sender: TEVA
  Company Number: DE-MEDICE-2025-MHF-16088

PATIENT
  Age: 21 Year
  Sex: Male
  Weight: 82 kg

DRUGS (1)
  1. METHYLPHENIDATE [Suspect]
     Active Substance: METHYLPHENIDATE
     Indication: Attention deficit hyperactivity disorder
     Route: 048
     Dates: start: 20250219, end: 20250219

REACTIONS (2)
  - Sensorimotor disorder [Recovered/Resolved]
  - Dysaesthesia [Unknown]

NARRATIVE: CASE EVENT DATE: 20250219
